FAERS Safety Report 8963754 (Version 1)
Quarter: 2012Q4

REPORT INFORMATION
  Report Type: Report from Study
  Country: GB (occurrence: NL)
  Receive Date: 20121214
  Receipt Date: 20121214
  Transmission Date: 20130627
  Serious: Yes (Hospitalization)
  Sender: FDA-Public Use
  Company Number: NL-ELI_LILLY_AND_COMPANY-NL201212001363

PATIENT
  Age: 72 Year
  Sex: Male
  Weight: 47 kg

DRUGS (4)
  1. GEMCITABINE HYDROCHLORIDE [Suspect]
     Indication: NON-SMALL CELL LUNG CANCER
     Dosage: 1000 mg, UNK
  2. BEVACIZUMAB [Suspect]
     Indication: NON-SMALL CELL LUNG CANCER
     Dosage: 7.5 mg/kg, 1 in 3 weeks
     Route: 042
     Dates: start: 20080131
  3. CARBOPLATIN [Suspect]
     Indication: NON-SMALL CELL LUNG CANCER
     Dosage: 350 mg, UNK
  4. ASCAL [Concomitant]
     Dosage: 20 mg, UNK

REACTIONS (1)
  - Epistaxis [Recovered/Resolved]
